FAERS Safety Report 7026950-8 (Version None)
Quarter: 2010Q3

REPORT INFORMATION
  Report Type: 
  Country: None (occurrence: None)
  Receive Date: 20100929
  Receipt Date: 20100920
  Transmission Date: 20110219
  Serious: Yes (Hospitalization)
  Sender: FDA-Public Use
  Company Number: 019012

PATIENT
  Sex: Male

DRUGS (3)
  1. KEPPRA [Suspect]
     Indication: EPILEPSY
     Dosage: (1 G ORAL)
     Route: 048
     Dates: start: 20070101
  2. TEGRETOL [Suspect]
     Indication: EPILEPSY
     Dosage: (1200 MG ORAL)
     Route: 048
     Dates: start: 20070101
  3. CIFLOX /00697201/ (CIFLOX) [Suspect]
     Indication: URINARY TRACT INFECTION
     Dosage: (ORAL)
     Route: 048
     Dates: start: 20090731, end: 20100803

REACTIONS (8)
  - AORTIC ARTERIOSCLEROSIS [None]
  - BALANCE DISORDER [None]
  - COAGULATION FACTOR VIII LEVEL INCREASED [None]
  - DIPLOPIA [None]
  - NYSTAGMUS [None]
  - PROTEIN C DEFICIENCY [None]
  - URINARY TRACT INFECTION [None]
  - VERTIGO [None]
